FAERS Safety Report 7128275-9 (Version None)
Quarter: 2010Q4

REPORT INFORMATION
  Report Type: 
  Country: None (occurrence: None)
  Receive Date: 20101130
  Receipt Date: 20091222
  Transmission Date: 20110411
  Serious: Yes (Hospitalization)
  Sender: FDA-Public Use
  Company Number: IN-BAXTER-2009BH017924

PATIENT
  Age: 60 Year
  Sex: Male

DRUGS (2)
  1. DIANEAL [Suspect]
     Indication: PERITONEAL DIALYSIS
     Route: 033
     Dates: start: 20091115
  2. DIANEAL [Suspect]
     Route: 033
     Dates: start: 20091114

REACTIONS (2)
  - PERITONITIS [None]
  - PYREXIA [None]
